FAERS Safety Report 25088889 (Version 1)
Quarter: 2025Q1

REPORT INFORMATION
  Report Type: Spontaneous
  Country: CO (occurrence: CO)
  Receive Date: 20250318
  Receipt Date: 20250318
  Transmission Date: 20250409
  Serious: Yes (Other)
  Sender: SANDOZ
  Company Number: CO-SANDOZ-SDZ2024CO072485

PATIENT
  Sex: Male

DRUGS (2)
  1. BILASTINE [Suspect]
     Active Substance: BILASTINE
     Indication: Product used for unknown indication
     Dosage: UNK UNK, QD, PATIENT HAD BEEN TAKING IT FOR 5 YEARS
     Route: 065
  2. MONTELUKAST [Suspect]
     Active Substance: MONTELUKAST
     Indication: Product used for unknown indication
     Dosage: UNK UNK, QD, HAD BEEN TAKING IT FOR 12 YEARS
     Route: 065

REACTIONS (3)
  - Hypersensitivity [Unknown]
  - Cough [Recovering/Resolving]
  - Product availability issue [Unknown]
